FAERS Safety Report 9863128 (Version 2)
Quarter: 2014Q1

REPORT INFORMATION
  Report Type: Spontaneous
  Country: JP (occurrence: JP)
  Receive Date: 20140203
  Receipt Date: 20140203
  Transmission Date: 20141002
  Serious: Yes (Other)
  Sender: FDA-Public Use
  Company Number: JP-ELI_LILLY_AND_COMPANY-JP201312007795

PATIENT
  Age: 73 Year
  Sex: Female

DRUGS (9)
  1. CYMBALTA [Suspect]
     Indication: DEPRESSION
     Dosage: 3 DF, QD
     Route: 048
  2. CYMBALTA [Suspect]
     Indication: BIPOLAR DISORDER
     Dosage: UNK
     Route: 048
     Dates: end: 20131115
  3. CYMBALTA [Suspect]
     Dosage: 60 MG, QD
     Route: 048
     Dates: start: 20131116, end: 20131121
  4. REMERON [Suspect]
     Indication: DEPRESSION
     Dosage: 15 MG, EACH EVENING
     Route: 048
     Dates: end: 20131121
  5. REMERON [Suspect]
     Indication: BIPOLAR DISORDER
  6. LIMAS [Concomitant]
     Indication: BIPOLAR DISORDER
     Dosage: 200 MG, BID
     Route: 048
     Dates: start: 20131109, end: 20131121
  7. LAMICTAL [Concomitant]
     Indication: BIPOLAR DISORDER
     Dosage: 50 MG, EACH EVENING
     Route: 048
     Dates: start: 201311, end: 20131121
  8. FLUNITRAZEPAM [Concomitant]
     Indication: INSOMNIA
     Dosage: 2 MG, EACH EVENING
     Route: 048
     Dates: end: 20131121
  9. MEDEPOLIN [Concomitant]
     Indication: INSOMNIA
     Dosage: 0.4 MG, EACH EVENING
     Route: 048
     Dates: end: 20131121

REACTIONS (3)
  - Ileus [Recovering/Resolving]
  - Off label use [Recovered/Resolved]
  - Mania [Recovering/Resolving]
